FAERS Safety Report 7074460-4 (Version None)
Quarter: 2010Q4

REPORT INFORMATION
  Report Type: 
  Country: None (occurrence: None)
  Receive Date: 20101029
  Receipt Date: 20101019
  Transmission Date: 20110411
  Serious: Yes (Hospitalization, Other)
  Sender: FDA-Public Use
  Company Number: US-US-EMD SERONO, INC.-235972K09USA

PATIENT
  Sex: Male
  Weight: 77 kg

DRUGS (6)
  1. REBIF [Suspect]
     Indication: MULTIPLE SCLEROSIS
     Route: 058
     Dates: start: 20030825
  2. LEXAPRO [Concomitant]
     Indication: DEPRESSION
     Route: 065
     Dates: start: 20090401
  3. PROVIGIL [Concomitant]
     Indication: ASTHENIA
     Route: 065
     Dates: start: 20081201
  4. MULTI-VITAMIN [Concomitant]
  5. CALCIUM [Concomitant]
  6. VITAMIN D [Concomitant]
     Dates: start: 20090101

REACTIONS (1)
  - PROSTATE CANCER [None]
